FAERS Safety Report 4676150-1 (Version None)
Quarter: 2005Q2

REPORT INFORMATION
  Report Type: 
  Country: None (occurrence: None)
  Receive Date: 20050527
  Receipt Date: 20050406
  Transmission Date: 20051028
  Serious: No
  Sender: FDA-Public Use
  Company Number: US-GLAXOSMITHKLINE-A0553000A

PATIENT
  Age: 58 Year
  Sex: Female

DRUGS (6)
  1. WELLBUTRIN XL [Suspect]
     Indication: DEPRESSION
     Dosage: 300MG PER DAY
     Route: 048
     Dates: start: 20041001
  2. PRENATAL VITAMINS [Concomitant]
  3. POTASSIUM SUPP [Concomitant]
  4. NEXIUM [Concomitant]
  5. BEXTRA [Concomitant]
  6. NITROGLYCERIN [Concomitant]

REACTIONS (2)
  - DEPRESSION [None]
  - SLUGGISHNESS [None]
